FAERS Safety Report 6433772-5 (Version None)
Quarter: 2009Q4

REPORT INFORMATION
  Report Type: 
  Country: None (occurrence: None)
  Receive Date: 20091110
  Receipt Date: 20091022
  Transmission Date: 20100525
  Serious: No
  Sender: FDA-Public Use
  Company Number: US-BAYER-200935828NA

PATIENT
  Age: 31 Year
  Sex: Female
  Weight: 96 kg

DRUGS (1)
  1. MIRENA [Suspect]
     Indication: DRUG USE FOR UNKNOWN INDICATION
     Dosage: CONTINUOUS
     Route: 015
     Dates: start: 20090805, end: 20091001

REACTIONS (2)
  - ABDOMINAL PAIN LOWER [None]
  - POST PROCEDURAL HAEMORRHAGE [None]
